FAERS Safety Report 17451221 (Version 1)
Quarter: 2020Q1

REPORT INFORMATION
  Report Type: Spontaneous
  Country: CH (occurrence: CH)
  Receive Date: 20200224
  Receipt Date: 20200224
  Transmission Date: 20200409
  Serious: Yes (Hospitalization, Other)
  Sender: FDA-Public Use
  Company Number: CH-PFIZER INC-2020075460

PATIENT
  Age: 21 Year
  Sex: Male

DRUGS (4)
  1. TRAZODONE [Suspect]
     Active Substance: TRAZODONE HYDROCHLORIDE
     Indication: DEPRESSION
     Dosage: 100 MG, 1X/DAY
     Route: 048
     Dates: end: 20191211
  2. XANAX [Suspect]
     Active Substance: ALPRAZOLAM
     Indication: DEPRESSION
     Dosage: 1 MG, AS NEEDED
     Route: 048
  3. XANAX [Suspect]
     Active Substance: ALPRAZOLAM
     Dosage: 23 MG, DAILY (IN TOTAL)
     Route: 048
     Dates: start: 20191212, end: 20191212
  4. XANAX [Suspect]
     Active Substance: ALPRAZOLAM
     Dosage: 3 MG, DAILY (IN TOTAL)
     Route: 048
     Dates: start: 20191211, end: 20191211

REACTIONS (7)
  - Overdose [Unknown]
  - Bradycardia [Recovered/Resolved]
  - Suicide attempt [Unknown]
  - Agitation [Unknown]
  - Suicidal ideation [Unknown]
  - Disturbance in attention [Recovered/Resolved]
  - Hypotension [Recovered/Resolved]

NARRATIVE: CASE EVENT DATE: 20191211
